FAERS Safety Report 6867803-5 (Version None)
Quarter: 2010Q3

REPORT INFORMATION
  Report Type: 
  Country: None (occurrence: None)
  Receive Date: 20100722
  Receipt Date: 20100714
  Transmission Date: 20110219
  Serious: Yes (Other)
  Sender: FDA-Public Use
  Company Number: AU-AMGEN-KDC424465

PATIENT
  Sex: Male

DRUGS (6)
  1. DENOSUMAB [Suspect]
     Indication: BONE GIANT CELL TUMOUR
     Route: 058
     Dates: start: 20100421
  2. DEXAMETHASONE [Suspect]
     Route: 048
     Dates: start: 20100412, end: 20100610
  3. OXYCONTIN [Concomitant]
     Route: 048
     Dates: start: 20100521
  4. GABAPENTIN [Concomitant]
     Route: 048
     Dates: start: 20100519
  5. AMITRIPTYLINE HYDROCHLORIDE [Concomitant]
     Route: 048
     Dates: start: 20100324
  6. MICROLAX [Concomitant]
     Route: 054
     Dates: start: 20100317

REACTIONS (1)
  - OSTEONECROSIS [None]
